FAERS Safety Report 23574821 (Version 2)
Quarter: 2024Q1

REPORT INFORMATION
  Report Type: Spontaneous
  Country: US (occurrence: US)
  Receive Date: 20240228
  Receipt Date: 20240326
  Transmission Date: 20240409
  Serious: No
  Sender: FDA-Public Use
  Company Number: US-BRISTOL-MYERS SQUIBB COMPANY-2024-031983

PATIENT
  Age: 63 Year
  Sex: Male

DRUGS (1)
  1. REVLIMID [Suspect]
     Active Substance: LENALIDOMIDE
     Indication: Embolism venous
     Route: 048

REACTIONS (5)
  - Pain [Unknown]
  - Skin irritation [Unknown]
  - Off label use [Unknown]
  - Pain in extremity [Unknown]
  - Pruritus [Recovering/Resolving]
